FAERS Safety Report 24463715 (Version 1)
Quarter: 2024Q4

REPORT INFORMATION
  Report Type: Report from Study
  Country: US (occurrence: US)
  Receive Date: 20241018
  Receipt Date: 20241018
  Transmission Date: 20250114
  Serious: No
  Sender: ROCHE
  Company Number: US-ROCHE-3490884

PATIENT
  Age: 67 Year
  Sex: Male

DRUGS (9)
  1. XOLAIR [Suspect]
     Active Substance: OMALIZUMAB
     Indication: Asthma
     Route: 042
  2. BREO ELLIPTA [Concomitant]
     Active Substance: FLUTICASONE FUROATE\VILANTEROL TRIFENATATE
  3. ALBUTEROL [Concomitant]
     Active Substance: ALBUTEROL
  4. IPRATROPIUM [Concomitant]
     Active Substance: IPRATROPIUM
  5. FLONASE [Concomitant]
     Active Substance: FLUTICASONE PROPIONATE
  6. EPINEPHRINE [Concomitant]
     Active Substance: EPINEPHRINE
  7. LIPITOR [Concomitant]
     Active Substance: ATORVASTATIN CALCIUM
  8. COZAAR [Concomitant]
     Active Substance: LOSARTAN POTASSIUM
  9. MORNIFLUMATE [Concomitant]
     Active Substance: MORNIFLUMATE

REACTIONS (2)
  - Off label use [Unknown]
  - No adverse event [Unknown]
